FAERS Safety Report 8071932-0 (Version None)
Quarter: 2012Q1

REPORT INFORMATION
  Report Type: 
  Country: None (occurrence: None)
  Receive Date: 20120124
  Receipt Date: 20120124
  Transmission Date: 20120608
  Serious: Yes (Disabling)
  Sender: FDA-Public Use
  Company Number: None

PATIENT
  Age: 74 Year
  Sex: Male
  Weight: 83.9154 kg

DRUGS (1)
  1. PRADAXA [Suspect]
     Indication: CEREBROVASCULAR ACCIDENT
     Dosage: 150MG TWICE A DAY EARLY SPRING TO MID DECEMBER 2011
     Dates: end: 20111201

REACTIONS (5)
  - DIPLOPIA [None]
  - PAIN IN EXTREMITY [None]
  - MUSCULOSKELETAL PAIN [None]
  - MOVEMENT DISORDER [None]
  - DIZZINESS [None]
